FAERS Safety Report 15365321 (Version 3)
Quarter: 2018Q4

REPORT INFORMATION
  Report Type: Spontaneous
  Country: FR (occurrence: FR)
  Receive Date: 20180910
  Receipt Date: 20181109
  Transmission Date: 20190204
  Serious: Yes (Hospitalization, Disabling, Other)
  Sender: FDA-Public Use
  Company Number: FR-AUROBINDO-AUR-APL-2018-044971

PATIENT
  Age: 19 Year
  Sex: Female
  Weight: 41.5 kg

DRUGS (5)
  1. PREDNISONE TABLET [Suspect]
     Active Substance: PREDNISONE
     Dosage: UNK
     Route: 048
     Dates: start: 20180615
  2. TAZOCILLINE [Suspect]
     Active Substance: PIPERACILLIN SODIUM\TAZOBACTAM SODIUM
     Indication: PRODUCT USED FOR UNKNOWN INDICATION
     Dosage: 4 G, 2X/DAY
     Route: 065
     Dates: start: 20180531
  3. PREDNISONE TABLET [Suspect]
     Active Substance: PREDNISONE
     Indication: GRAFT VERSUS HOST DISEASE
     Dosage: UNK
     Route: 048
     Dates: start: 20180611
  4. PREDNISONE TABLET [Suspect]
     Active Substance: PREDNISONE
     Dosage: 60 MG, 1X/DAY
     Route: 048
     Dates: start: 20180611, end: 20180614
  5. METHYLPREDNISOLONE SODIUM SUCCINATE. [Suspect]
     Active Substance: METHYLPREDNISOLONE SODIUM SUCCINATE
     Indication: GRAFT VERSUS HOST DISEASE
     Dosage: 80 MG, 1X/DAY
     Route: 042
     Dates: start: 20180531, end: 20180610

REACTIONS (4)
  - Condition aggravated [Recovered/Resolved]
  - Acute graft versus host disease [Recovered/Resolved]
  - Colitis [Recovered/Resolved with Sequelae]
  - Peritonitis [Recovered/Resolved]

NARRATIVE: CASE EVENT DATE: 20180614
